FAERS Safety Report 4760375-0 (Version None)
Quarter: 2005Q3

REPORT INFORMATION
  Report Type: 
  Country: None (occurrence: None)
  Receive Date: 20050829
  Receipt Date: 20041220
  Transmission Date: 20060218
  Serious: Yes (Other)
  Sender: FDA-Public Use
  Company Number: A03200404284

PATIENT
  Sex: Male

DRUGS (3)
  1. AMBIEN [Suspect]
     Indication: INSOMNIA
     Dosage: 20 MG ONCE - ORAL
     Route: 048
     Dates: start: 20041201
  2. AMBIEN [Suspect]
     Indication: INSOMNIA
     Dosage: 10 MG PRN - ORAL
     Route: 048
  3. ALCOHOL - LIQUID [Suspect]
     Indication: INTENTIONAL MISUSE
     Dosage: FIVE COCKTAILS - ORAL
     Route: 048
     Dates: start: 20041201, end: 20041201

REACTIONS (4)
  - AMNESIA [None]
  - CONVULSION [None]
  - FEELING ABNORMAL [None]
  - OVERDOSE [None]
